FAERS Safety Report 5228815-0 (Version None)
Quarter: 2007Q1

REPORT INFORMATION
  Report Type: 
  Country: None (occurrence: None)
  Receive Date: 20070205
  Receipt Date: 20070125
  Transmission Date: 20070707
  Serious: Yes (Life-Threatening, Hospitalization)
  Sender: FDA-Public Use
  Company Number: FR-BRISTOL-MYERS SQUIBB COMPANY-13661111

PATIENT
  Age: 61 Year
  Sex: Male

DRUGS (7)
  1. GLUCOPHAGE [Suspect]
     Route: 048
     Dates: end: 20061217
  2. TEGELINE [Suspect]
     Indication: IDIOPATHIC THROMBOCYTOPENIC PURPURA
     Route: 042
     Dates: start: 20061213, end: 20061215
  3. ATARAX [Suspect]
     Route: 048
  4. SOLUPRED [Suspect]
  5. SOLIAN [Suspect]
     Route: 048
     Dates: start: 20061217
  6. LANZOR [Suspect]
     Route: 048
     Dates: start: 20061217
  7. POTASSIUM ACETATE [Concomitant]
     Indication: SUPPLEMENTATION THERAPY

REACTIONS (1)
  - RENAL FAILURE ACUTE [None]
